FAERS Safety Report 15049319 (Version 2)
Quarter: 2018Q2

REPORT INFORMATION
  Report Type: Spontaneous
  Country: US (occurrence: US)
  Receive Date: 20180622
  Receipt Date: 20180628
  Transmission Date: 20180711
  Serious: No
  Sender: FDA-Public Use
  Company Number: US-009507513-1806USA009843

PATIENT
  Sex: Female

DRUGS (5)
  1. XANAX [Concomitant]
     Active Substance: ALPRAZOLAM
     Indication: SLEEP APNOEA SYNDROME
  2. AMBIEN CR [Concomitant]
     Active Substance: ZOLPIDEM TARTRATE
     Indication: SLEEP APNOEA SYNDROME
  3. BELSOMRA [Suspect]
     Active Substance: SUVOREXANT
     Indication: SLEEP APNOEA SYNDROME
     Dosage: UNK
     Route: 048
  4. AMBIEN [Concomitant]
     Active Substance: ZOLPIDEM TARTRATE
     Indication: SLEEP APNOEA SYNDROME
  5. TEMAZEPAM. [Concomitant]
     Active Substance: TEMAZEPAM
     Indication: SLEEP APNOEA SYNDROME

REACTIONS (1)
  - Drug effective for unapproved indication [Unknown]
